FAERS Safety Report 9129230 (Version 1)
Quarter: 2013Q1

REPORT INFORMATION
  Report Type: Spontaneous
  Country: BR (occurrence: BR)
  Receive Date: 20130125
  Receipt Date: 20130125
  Transmission Date: 20140127
  Serious: Yes (Hospitalization, Other)
  Sender: FDA-Public Use
  Company Number: BR-AMGEN-BRASP2012013536

PATIENT
  Age: 40 Year
  Sex: Female
  Weight: 55 kg

DRUGS (16)
  1. ENBREL [Suspect]
     Indication: ANKYLOSING SPONDYLITIS
     Dosage: 50 MG, ONCE WEEKLY
     Route: 058
     Dates: start: 201202
  2. OMEPRAZOL                          /00661201/ [Concomitant]
     Indication: GASTRIC DISORDER
     Dosage: 20 MG, TWICE A DAY
  3. TYLEX                              /00547501/ [Concomitant]
     Indication: PAIN
     Dosage: 60 MG, 1X/DAY (2 TABLETS OF 30 MG, DAILY)
  4. TYLEX                              /00547501/ [Concomitant]
     Indication: ANALGESIC THERAPY
  5. NIMESULIDE [Concomitant]
     Indication: ANTIINFLAMMATORY THERAPY
     Dosage: 200 MG, 1X/DAY (2 TABLETS OF 100 MG, DAILY)
  6. RIVOTRIL [Concomitant]
     Indication: SLEEP DISORDER
     Dosage: 2 MG, 1X/DAY
  7. PURAN T4 [Concomitant]
     Indication: THYROIDECTOMY
     Dosage: 125 MG, 1X/DAY
  8. ULTRACET [Concomitant]
     Indication: ANALGESIC THERAPY
     Dosage: 37 MG, 1X/DAY
  9. IBUPROFEN [Concomitant]
     Indication: ANTIINFLAMMATORY THERAPY
     Dosage: 600 MG, 3X/DAY
  10. CYMBALTA [Concomitant]
     Indication: FIBROMYALGIA
     Dosage: 30 MG, 1X/DAY
  11. DIMORF [Concomitant]
     Indication: PAIN
     Dosage: 10 MG, 4X/DAY
  12. NAPROXEN [Concomitant]
     Indication: ANTIINFLAMMATORY THERAPY
     Dosage: UNK
  13. ACETAMINOPHEN [Concomitant]
     Indication: INFLUENZA
     Dosage: 4 (UNSPECIFIED DOSE) DAILY
  14. DEPO-PROVERA [Concomitant]
     Dosage: UNK
  15. SERETIDE [Concomitant]
     Indication: ASTHMA
     Dosage: 50/250MG
  16. DOMPERIDONE [Concomitant]
     Indication: ABDOMINAL DISCOMFORT
     Dosage: UNK, TWICE A DAY

REACTIONS (15)
  - Acute coronary syndrome [Unknown]
  - Dyspnoea [Unknown]
  - Asthma [Unknown]
  - Nausea [Unknown]
  - Dizziness [Unknown]
  - Chest discomfort [Unknown]
  - Fatigue [Unknown]
  - Eye pain [Unknown]
  - Influenza like illness [Unknown]
  - Nasal congestion [Unknown]
  - Burning sensation [Unknown]
  - Chest pain [Unknown]
  - Application site swelling [Unknown]
  - Application site erythema [Not Recovered/Not Resolved]
  - Application site pruritus [Not Recovered/Not Resolved]
